FAERS Safety Report 18151188 (Version 1)
Quarter: 2020Q3

REPORT INFORMATION
  Report Type: Spontaneous
  Country: US (occurrence: US)
  Receive Date: 20200814
  Receipt Date: 20200814
  Transmission Date: 20201103
  Serious: Yes (Other)
  Sender: FDA-Public Use
  Company Number: US-BAYER-2020-163989

PATIENT
  Age: 70 Year
  Sex: Male

DRUGS (1)
  1. ACETYLSALICYLIC ACID [Suspect]
     Active Substance: ASPIRIN

REACTIONS (2)
  - Treatment failure [None]
  - Basal ganglia infarction [None]
